FAERS Safety Report 11788638 (Version 1)
Quarter: 2015Q4

REPORT INFORMATION
  Report Type: Spontaneous
  Country: GB (occurrence: GB)
  Receive Date: 20151201
  Receipt Date: 20151201
  Transmission Date: 20160305
  Serious: Yes (Other)
  Sender: FDA-Public Use
  Company Number: GB-HOSPIRA-3095184

PATIENT

DRUGS (3)
  1. MIDAZOLAM [Suspect]
     Active Substance: MIDAZOLAM\MIDAZOLAM HYDROCHLORIDE
     Indication: CAESAREAN SECTION
     Dates: start: 2013, end: 2013
  2. ALFENTANIL. [Suspect]
     Active Substance: ALFENTANIL
     Indication: CAESAREAN SECTION
     Dates: start: 2013, end: 2013
  3. PROPOFOL. [Suspect]
     Active Substance: PROPOFOL
     Indication: CAESAREAN SECTION
     Dates: start: 2013, end: 2013

REACTIONS (2)
  - Foetal exposure during delivery [Recovered/Resolved]
  - Neonatal respiratory depression [Recovered/Resolved]

NARRATIVE: CASE EVENT DATE: 2013
